FAERS Safety Report 12074900 (Version 3)
Quarter: 2018Q4

REPORT INFORMATION
  Report Type: Report from Study
  Country: FR (occurrence: FR)
  Receive Date: 20160212
  Receipt Date: 20181105
  Transmission Date: 20190204
  Serious: Yes (Hospitalization, Other)
  Sender: FDA-Public Use
  Company Number: FR-GILEAD-2016-0197453

PATIENT
  Age: 56 Year
  Sex: Male

DRUGS (5)
  1. SERESTA [Concomitant]
     Active Substance: OXAZEPAM
     Indication: DEPRESSION
     Dosage: 10 MG, UNK
     Dates: start: 201502, end: 201606
  2. STABLON [Concomitant]
     Active Substance: TIANEPTINE
     Indication: DEPRESSION
     Dosage: 12.5 MG, BID
     Dates: start: 201502, end: 201606
  3. LEDIPASVIR/SOFOSBUVIR [Suspect]
     Active Substance: LEDIPASVIR\SOFOSBUVIR
     Indication: CHRONIC HEPATITIS C
     Dosage: 1 DF, QD
     Route: 048
     Dates: start: 20160104, end: 20160403
  4. RIBAVIRIN. [Suspect]
     Active Substance: RIBAVIRIN
     Indication: CHRONIC HEPATITIS C
     Dosage: , 5 TIMES/DAY
     Route: 048
     Dates: start: 20160104, end: 20160403
  5. ATARAX [HYDROXYZINE] [Concomitant]
     Indication: DEPRESSION
     Dosage: UNK
     Dates: start: 201502, end: 201606

REACTIONS (3)
  - Hyperglycaemia [Recovered/Resolved]
  - General physical health deterioration [Not Recovered/Not Resolved]
  - Diabetes mellitus [Recovered/Resolved]

NARRATIVE: CASE EVENT DATE: 20160119
